FAERS Safety Report 19166295 (Version 1)
Quarter: 2021Q2

REPORT INFORMATION
  Report Type: Spontaneous
  Country: FR (occurrence: FR)
  Receive Date: 20210422
  Receipt Date: 20210422
  Transmission Date: 20210717
  Serious: Yes (Other)
  Sender: FDA-Public Use
  Company Number: FR-AUROBINDO-AUR-APL-2021-015628

PATIENT
  Age: 60 Year
  Sex: Male

DRUGS (12)
  1. THALIDOMIDE [Suspect]
     Active Substance: THALIDOMIDE
     Indication: PLASMA CELL MYELOMA
     Dosage: UNK UNK, UNKNOWN FREQ.(1ST LINE TREATMENT)
     Route: 065
  2. MELPHALAN. [Suspect]
     Active Substance: MELPHALAN
     Indication: PLASMA CELL MYELOMA
     Dosage: UNK UNK, UNKNOWN FREQ.(1ST LINE TREATMENT)
     Route: 065
  3. CYCLOPHOSPHAMIDE. [Suspect]
     Active Substance: CYCLOPHOSPHAMIDE
     Dosage: UNK UNK, UNKNOWN FREQ.(1ST LINE TREATMENT)
     Route: 065
  4. PREDNISONE. [Suspect]
     Active Substance: PREDNISONE
     Indication: PLASMA CELL MYELOMA
     Dosage: UNK UNK, UNKNOWN FREQ.(THIRD LINE TREATMENT)
     Route: 065
  5. BENDAMUSTINE HYDROCHLORIDE. [Suspect]
     Active Substance: BENDAMUSTINE HYDROCHLORIDE
     Indication: PLASMA CELL MYELOMA
     Dosage: UNK UNK, UNKNOWN FREQ.(4TH LINE TREATMENT)
     Route: 042
  6. VELCADE [Suspect]
     Active Substance: BORTEZOMIB
     Dosage: UNK UNK, UNKNOWN FREQ.(4TH LINE TREATMENT)
     Route: 065
     Dates: start: 20160428
  7. CYCLOPHOSPHAMIDE. [Suspect]
     Active Substance: CYCLOPHOSPHAMIDE
     Indication: PLASMA CELL MYELOMA
     Dosage: UNK UNK, UNKNOWN FREQ.(3RD LINE TREATMENT)
     Route: 065
  8. DEXAMETHASONE. [Suspect]
     Active Substance: DEXAMETHASONE
     Dosage: UNK UNK, UNKNOWN FREQ.(4TH LINE TREATMENT)
     Route: 065
     Dates: start: 20160424
  9. VELCADE [Suspect]
     Active Substance: BORTEZOMIB
     Indication: PLASMA CELL MYELOMA
     Dosage: LYOPHILIZED POWDER, FIRST LINE TREATMENT
     Route: 065
  10. CAELYX [Suspect]
     Active Substance: DOXORUBICIN HYDROCHLORIDE
     Indication: PLASMA CELL MYELOMA
     Dosage: UNK UNK, UNKNOWN FREQ.
     Route: 042
  11. DEXAMETHASONE. [Suspect]
     Active Substance: DEXAMETHASONE
     Indication: PLASMA CELL MYELOMA
     Dosage: UNK UNK, UNKNOWN FREQ.(1ST LINE TREATMENT)
     Route: 065
  12. ONCOVIN [Suspect]
     Active Substance: VINCRISTINE SULFATE
     Indication: PLASMA CELL MYELOMA
     Dosage: UNK UNK, UNKNOWN FREQ.(3RD LINE TREATMENT)
     Route: 065

REACTIONS (2)
  - Off label use [Unknown]
  - Plasma cell myeloma recurrent [Unknown]

NARRATIVE: CASE EVENT DATE: 20160519
